FAERS Safety Report 6144626-6 (Version None)
Quarter: 2009Q2

REPORT INFORMATION
  Report Type: 
  Country: None (occurrence: None)
  Receive Date: 20090401
  Receipt Date: 20090320
  Transmission Date: 20091009
  Serious: Yes (Hospitalization)
  Sender: FDA-Public Use
  Company Number: WAES 0903BRA00052

PATIENT
  Age: 49 Year
  Sex: Male

DRUGS (1)
  1. CAP VORINOSTAT [Suspect]
     Indication: LYMPHOMA
     Dosage: 300 MG/DAILY
     Dates: start: 20090210, end: 20090319

REACTIONS (2)
  - INFECTION [None]
  - PHARYNGITIS [None]
